FAERS Safety Report 23950816 (Version 1)
Quarter: 2024Q2

REPORT INFORMATION
  Report Type: Report from Study
  Country: JP (occurrence: JP)
  Receive Date: 20240607
  Receipt Date: 20240607
  Transmission Date: 20240715
  Serious: Yes (Other)
  Sender: FDA-Public Use
  Company Number: JP-Eisai-202400678_LEQ_P_1

PATIENT
  Age: 71 Year
  Sex: Male

DRUGS (2)
  1. LEQEMBI [Suspect]
     Active Substance: LECANEMAB-IRMB
     Indication: Cognitive disorder
     Dosage: DOSE AND FREQUENCY UNKNOWN
     Route: 041
  2. INSULIN NOS [Concomitant]
     Active Substance: INSULIN NOS
     Dosage: DOSE UNKNOWN
     Route: 065

REACTIONS (1)
  - Cerebral haemorrhage [Unknown]
